FAERS Safety Report 14018377 (Version 1)
Quarter: 2017Q3

REPORT INFORMATION
  Report Type: Spontaneous
  Country: US (occurrence: US)
  Receive Date: 20170928
  Receipt Date: 20170928
  Transmission Date: 20171128
  Serious: No
  Sender: FDA-Public Use
  Company Number: US-TEVA-797934USA

PATIENT
  Age: 30 Year
  Sex: Female

DRUGS (1)
  1. PRAZOSIN. [Suspect]
     Active Substance: PRAZOSIN
     Indication: NIGHTMARE
     Dosage: 5 MILLIGRAM DAILY;
     Route: 065

REACTIONS (3)
  - Off label use [Unknown]
  - Ocular hyperaemia [Unknown]
  - Confusional state [Unknown]
